FAERS Safety Report 8087093 (Version 2)
Quarter: 2012Q4

REPORT INFORMATION
  Report Type: 
  Country: US (occurrence: US)
  Receive Date: 20110811
  Receipt Date: 20120926
  Transmission Date: 20130627
  Serious: Yes (Other)
  Sender: FDA-Public Use
  Company Number: US-US-EMD SERONO, INC.-7075216

PATIENT
  Age: 57 None
  Sex: Female

DRUGS (7)
  1. REBIF [Suspect]
     Indication: MULTIPLE SCLEROSIS
     Route: 058
     Dates: start: 20090625
  2. AMPYRA [Suspect]
     Indication: MULTIPLE SCLEROSIS
     Dates: start: 2011, end: 201107
  3. CYMBALTA [Concomitant]
     Indication: NEUROPATHY PERIPHERAL
  4. CYMBALTA [Concomitant]
     Indication: DEPRESSION
  5. LUNESTA [Concomitant]
     Indication: PRODUCT USED FOR UNKNOWN INDICATION
  6. PROZAC [Concomitant]
  7. GABAPENTIN [Concomitant]
     Indication: PRODUCT USED FOR UNKNOWN INDICATION

REACTIONS (2)
  - Syncope [Recovering/Resolving]
  - Convulsion [Recovering/Resolving]
